FAERS Safety Report 11468894 (Version 2)
Quarter: 2016Q1

REPORT INFORMATION
  Report Type: Spontaneous
  Country: FR (occurrence: FR)
  Receive Date: 20150908
  Receipt Date: 20160212
  Transmission Date: 20160525
  Serious: Yes (Hospitalization)
  Sender: FDA-Public Use
  Company Number: FR-ELI_LILLY_AND_COMPANY-FR201508008506

PATIENT
  Age: 69 Year
  Sex: Female
  Weight: 67 kg

DRUGS (2)
  1. SEROPLEX [Concomitant]
     Active Substance: ESCITALOPRAM OXALATE
     Indication: DEPRESSION
     Dosage: 5MG TO 10MG, UNKNOWN
     Route: 048
     Dates: start: 2010, end: 2015
  2. ZYPREXA [Suspect]
     Active Substance: OLANZAPINE
     Indication: PERSECUTORY DELUSION
     Dosage: 1 DF, 5 TO 10MG UNKNOWN
     Route: 048
     Dates: start: 2010, end: 201507

REACTIONS (3)
  - Angle closure glaucoma [Recovered/Resolved with Sequelae]
  - Optic atrophy [Unknown]
  - Contraindicated drug administered [Unknown]

NARRATIVE: CASE EVENT DATE: 20150702
